FAERS Safety Report 15231421 (Version 1)
Quarter: 2018Q3

REPORT INFORMATION
  Report Type: Spontaneous
  Country: US (occurrence: US)
  Receive Date: 20180708
  Receipt Date: 20180708
  Transmission Date: 20181010
  Serious: No
  Sender: FDA-Public Use
  Company Number: None

PATIENT
  Age: 56 Year
  Sex: Female
  Weight: 128.25 kg

DRUGS (2)
  1. OXYBUTYNIN 5 MG TABLETS ( MFG TEVA) [Suspect]
     Active Substance: OXYBUTYNIN
     Indication: HYPERTONIC BLADDER
     Dosage: ?          QUANTITY:1 TABLET(S);?
     Route: 048
     Dates: start: 20180706, end: 20180706
  2. EX?LAX REGULAR STRENGTH STIMULANT LAXATIVE [Concomitant]
     Active Substance: SENNOSIDES

REACTIONS (10)
  - Fatigue [None]
  - Vasodilatation [None]
  - Hyperhidrosis [None]
  - Tension headache [None]
  - Dizziness [None]
  - Nausea [None]
  - Dyspepsia [None]
  - Swelling [None]
  - Flushing [None]
  - Dysgeusia [None]

NARRATIVE: CASE EVENT DATE: 20180706
